FAERS Safety Report 19055679 (Version 6)
Quarter: 2022Q1

REPORT INFORMATION
  Report Type: Report from Study
  Country: CA (occurrence: CA)
  Receive Date: 20210324
  Receipt Date: 20220311
  Transmission Date: 20220424
  Serious: Yes (Other)
  Sender: FDA-Public Use
  Company Number: CA-BRISTOL-MYERS SQUIBB COMPANY-BMS-2021-023633

PATIENT
  Age: 75 Year
  Sex: Female

DRUGS (2)
  1. ABATACEPT [Suspect]
     Active Substance: ABATACEPT
     Indication: Rheumatoid arthritis
     Dosage: 750 MILLIGRAM, Q4WK
     Route: 042
     Dates: start: 20181025
  2. ABATACEPT [Suspect]
     Active Substance: ABATACEPT
     Dosage: 750 MILLIGRAM, Q4WK
     Route: 042

REACTIONS (9)
  - Urethral disorder [Unknown]
  - Urinary tract infection [Unknown]
  - Pain [Unknown]
  - Anxiety [Unknown]
  - Pain in extremity [Unknown]
  - Cystitis [Unknown]
  - Arteritis [Unknown]
  - Bladder prolapse [Unknown]
  - Inappropriate schedule of product administration [Unknown]
